FAERS Safety Report 25760351 (Version 2)
Quarter: 2025Q3

REPORT INFORMATION
  Report Type: Spontaneous
  Country: US (occurrence: US)
  Receive Date: 20250904
  Receipt Date: 20250908
  Transmission Date: 20251020
  Serious: Yes (Life-Threatening, Hospitalization, Other)
  Sender: PFIZER
  Company Number: US-PFIZER INC-PV202500105407

PATIENT
  Age: 26 Year
  Sex: Female

DRUGS (1)
  1. ROPIVACAINE HYDROCHLORIDE [Suspect]
     Active Substance: ROPIVACAINE HYDROCHLORIDE
     Indication: Anaesthesia
     Route: 008

REACTIONS (3)
  - Hypotension [Recovered/Resolved]
  - Respiratory depression [Recovered/Resolved]
  - Loss of consciousness [Recovered/Resolved]
